FAERS Safety Report 18794249 (Version 2)
Quarter: 2021Q1

REPORT INFORMATION
  Report Type: Spontaneous
  Country: FR (occurrence: FR)
  Receive Date: 20210127
  Receipt Date: 20210223
  Transmission Date: 20210419
  Serious: Yes (Death, Life-Threatening, Other)
  Sender: FDA-Public Use
  Company Number: FR-LUPIN PHARMACEUTICALS INC.-2021-00597

PATIENT
  Age: 58 Year
  Sex: Male
  Weight: 56 kg

DRUGS (7)
  1. GABAPENTIN. [Suspect]
     Active Substance: GABAPENTIN
     Dosage: 800 MILLIGRAM, TID, EACH MORNING, NOON AND EVENING
     Route: 065
  2. GABAPENTIN. [Suspect]
     Active Substance: GABAPENTIN
     Dosage: 100 MILLIGRAM, TID, EACH MORNING, NOON AND EVENING
     Route: 065
  3. GABAPENTIN. [Suspect]
     Active Substance: GABAPENTIN
     Indication: DEPRESSION
     Dosage: GABAPENTIN DOSAGE WAS INCREASED
     Route: 065
     Dates: start: 2018, end: 2019
  4. PARACETAMOL [Concomitant]
     Active Substance: ACETAMINOPHEN
     Indication: PRODUCT USED FOR UNKNOWN INDICATION
     Dosage: 1000 MILLIGRAM, PRN
     Route: 065
  5. GABAPENTIN. [Suspect]
     Active Substance: GABAPENTIN
     Indication: NEURALGIA
     Dosage: GABAPENTIN DOSAGE WAS INCREASED IN 2018 AND IN MID?2019
     Route: 065
     Dates: start: 2017, end: 2018
  6. GABAPENTIN. [Suspect]
     Active Substance: GABAPENTIN
     Dosage: GABAPENTIN DOSAGE WAS INCREASED
     Route: 065
     Dates: start: 2019
  7. BROMAZEPAM [Concomitant]
     Active Substance: BROMAZEPAM
     Indication: PRODUCT USED FOR UNKNOWN INDICATION
     Dosage: 1 DOSAGE FORM, QD (EVENING)
     Route: 065

REACTIONS (3)
  - Intentional product misuse [Fatal]
  - Overdose [Fatal]
  - Toxicity to various agents [Fatal]
